FAERS Safety Report 20776207 (Version 7)
Quarter: 2022Q3

REPORT INFORMATION
  Report Type: Report from Study
  Country: TW (occurrence: None)
  Receive Date: 20220502
  Receipt Date: 20220923
  Transmission Date: 20221027
  Serious: Yes (Hospitalization)
  Sender: FDA-Public Use
  Company Number: TW-Eisai Medical Research-EC-2022-111737

PATIENT
  Age: 66 Year
  Sex: Male
  Weight: 60.8 kg

DRUGS (8)
  1. LENVATINIB [Suspect]
     Active Substance: LENVATINIB
     Indication: Hepatocellular carcinoma
     Route: 048
     Dates: start: 20220224, end: 20220316
  2. LENVATINIB [Suspect]
     Active Substance: LENVATINIB
     Route: 048
     Dates: start: 20220408, end: 20220411
  3. LENVATINIB [Suspect]
     Active Substance: LENVATINIB
     Route: 048
     Dates: start: 20220421
  4. QUAVONLIMAB [Suspect]
     Active Substance: QUAVONLIMAB
     Indication: Hepatocellular carcinoma
     Dosage: MK-1308A 425 MG (CONTAINS QUAVILIMAB (MK-1308) 25 MG PLUS PEMBROLIZUMAB (MK-3475) 400 MG)
     Route: 041
     Dates: start: 20220224, end: 20220224
  5. C.B. OINTMENT ^STRONG^ [Concomitant]
     Dates: start: 20220303, end: 20220417
  6. BROTIZOLAM [Concomitant]
     Active Substance: BROTIZOLAM
     Dates: start: 20210330
  7. ENTECAVIR [Concomitant]
     Active Substance: ENTECAVIR
     Dates: start: 20220120
  8. PEMBROLIZUMAB [Suspect]
     Active Substance: PEMBROLIZUMAB

REACTIONS (2)
  - Pyrexia [Recovered/Resolved]
  - Meningitis aseptic [Recovered/Resolved]

NARRATIVE: CASE EVENT DATE: 20220311
